FAERS Safety Report 10330684 (Version 1)
Quarter: 2014Q3

REPORT INFORMATION
  Report Type: Spontaneous
  Country: US (occurrence: None)
  Receive Date: 20140718
  Receipt Date: 20140718
  Transmission Date: 20150326
  Serious: No
  Sender: FDA-Public Use
  Company Number: None

PATIENT
  Age: 77 Year
  Sex: Male
  Weight: 106.6 kg

DRUGS (1)
  1. MYRBETRIQ [Suspect]
     Active Substance: MIRABEGRON
     Indication: NOCTURIA
     Dosage: 30   ONCE DAILY TAKEN BY MOUTH
     Route: 048
     Dates: start: 20140630, end: 20140703

REACTIONS (6)
  - Headache [None]
  - Urine flow decreased [None]
  - Dysuria [None]
  - Micturition disorder [None]
  - Swelling [None]
  - Urinary retention [None]

NARRATIVE: CASE EVENT DATE: 20140703
